FAERS Safety Report 8081009-6 (Version None)
Quarter: 2012Q1

REPORT INFORMATION
  Report Type: 
  Country: None (occurrence: None)
  Receive Date: 20120130
  Receipt Date: 20120124
  Transmission Date: 20120608
  Serious: Yes (Hospitalization)
  Sender: FDA-Public Use
  Company Number: PHHO2011DE019717

PATIENT
  Sex: Male
  Weight: 97.5 kg

DRUGS (7)
  1. MARCUMAR [Concomitant]
     Indication: PULMONARY ARTERIAL HYPERTENSION
     Dosage: AFTER INR
     Route: 048
     Dates: end: 20111123
  2. AQUAPHOR [Concomitant]
     Indication: OEDEMA
     Dosage: 10 MG, BID
     Route: 048
  3. SILDENAFIL [Concomitant]
     Indication: PULMONARY ARTERIAL HYPERTENSION
     Dosage: 40 MG, TID
     Route: 048
     Dates: start: 20070601
  4. GLEEVEC [Suspect]
     Indication: PULMONARY ARTERIAL HYPERTENSION
     Dosage: 200 MG, BID
     Route: 048
     Dates: start: 20100528
  5. KALIUM ^VERLA^ [Concomitant]
     Dosage: UNK
  6. LASIX [Concomitant]
     Indication: OEDEMA
     Dosage: 20 MG, BID
     Route: 048
  7. BOSENTAN [Concomitant]
     Indication: PULMONARY ARTERIAL HYPERTENSION
     Dosage: 125 MG, BID
     Route: 048
     Dates: start: 20060201

REACTIONS (1)
  - SUBDURAL HAEMATOMA [None]
